FAERS Safety Report 14267846 (Version 2)
Quarter: 2018Q4

REPORT INFORMATION
  Report Type: Spontaneous
  Country: US (occurrence: US)
  Receive Date: 20171211
  Receipt Date: 20181113
  Transmission Date: 20190204
  Serious: No
  Sender: FDA-Public Use
  Company Number: US-ROCHE-1918339

PATIENT
  Age: 76 Year
  Sex: Male

DRUGS (1)
  1. LUCENTIS [Suspect]
     Active Substance: RANIBIZUMAB
     Indication: RETINAL VEIN OCCLUSION
     Dosage: RIGHT EYE
     Route: 050
     Dates: start: 20140121

REACTIONS (4)
  - Eye pain [Unknown]
  - Eye irritation [Unknown]
  - Burning sensation [Unknown]
  - Injection site pain [Unknown]

NARRATIVE: CASE EVENT DATE: 20170301
